FAERS Safety Report 21560587 (Version 1)
Quarter: 2022Q4

REPORT INFORMATION
  Report Type: Spontaneous
  Country: HR (occurrence: HR)
  Receive Date: 20221107
  Receipt Date: 20221107
  Transmission Date: 20230113
  Serious: Yes (Other)
  Sender: FDA-Public Use
  Company Number: None

PATIENT
  Age: 14 Year
  Sex: Female
  Weight: 70 kg

DRUGS (3)
  1. IBUPROFEN [Suspect]
     Active Substance: IBUPROFEN
     Indication: Product used for unknown indication
     Dosage: 7.6 GRAM, QD
     Route: 048
     Dates: start: 20220722, end: 20220722
  2. NEBIVOLOL [Suspect]
     Active Substance: NEBIVOLOL
     Indication: Product used for unknown indication
     Dosage: 70 MILLIGRAM, QD
     Route: 048
     Dates: start: 20220722, end: 20220722
  3. FELODIPINE\RAMIPRIL [Suspect]
     Active Substance: FELODIPINE\RAMIPRIL
     Indication: Product used for unknown indication
     Dosage: DF=5 MG FELODIPINE+5MG RAMIPRIL
     Route: 048
     Dates: start: 20220722, end: 20220722

REACTIONS (4)
  - Suicide attempt [Unknown]
  - Tremor [Unknown]
  - Vertigo [Unknown]
  - Intentional overdose [Unknown]

NARRATIVE: CASE EVENT DATE: 20220722
